FAERS Safety Report 4931989-X (Version None)
Quarter: 2006Q1

REPORT INFORMATION
  Report Type: 
  Country: None (occurrence: None)
  Receive Date: 20060303
  Receipt Date: 20060301
  Transmission Date: 20060701
  Serious: Yes (Hospitalization)
  Sender: FDA-Public Use
  Company Number: 186

PATIENT
  Age: 45 Year
  Sex: Male
  Weight: 79 kg

DRUGS (1)
  1. MELPHALAN [Suspect]
     Dosage: 400MG SINGLE DOSE
     Route: 042
     Dates: start: 20060122

REACTIONS (4)
  - DYSPNOEA [None]
  - HYPOXIA [None]
  - OXYGEN SATURATION DECREASED [None]
  - RESPIRATORY SYNCYTIAL VIRUS INFECTION [None]
